FAERS Safety Report 5145957-9 (Version None)
Quarter: 2006Q4

REPORT INFORMATION
  Report Type: 
  Country: None (occurrence: None)
  Receive Date: 20061108
  Receipt Date: 20011210
  Transmission Date: 20070319
  Serious: Yes (Other)
  Sender: FDA-Public Use
  Company Number: EMADSS2001007403

PATIENT
  Sex: Female
  Weight: 58 kg

DRUGS (2)
  1. PRAMINO [Suspect]
     Indication: CONTRACEPTION
     Route: 048
     Dates: start: 20001215, end: 20010111
  2. HYDROXYZINE [Concomitant]
     Indication: ANXIETY
     Route: 065

REACTIONS (1)
  - SCHIZOPHRENIA [None]
